FAERS Safety Report 8915660 (Version 2)
Quarter: 2012Q4

REPORT INFORMATION
  Report Type: 
  Country: US (occurrence: US)
  Receive Date: 20121119
  Receipt Date: 20121220
  Transmission Date: 20130627
  Serious: Yes (Hospitalization)
  Sender: FDA-Public Use
  Company Number: US-ELI_LILLY_AND_COMPANY-US201211002991

PATIENT
  Sex: Female

DRUGS (10)
  1. FORTEO [Suspect]
     Indication: OSTEOPOROSIS
     Dosage: 20 ug, qd
     Dates: start: 20121008
  2. CRESTOR [Concomitant]
     Dosage: 10 ug, qd
  3. LOPRESSOR [Concomitant]
     Dosage: 100 mg, bid
  4. DIOVAN [Concomitant]
     Dosage: 80 mg, qd
  5. MINOXIDIL [Concomitant]
     Dosage: 10 mg, bid
  6. DILTIAZEM [Concomitant]
     Dosage: 180 mg, qd
  7. FUROSEMIDE [Concomitant]
     Dosage: 80 mg, qd
  8. ACTOS [Concomitant]
     Dosage: 15 mg, qd
  9. HYDROXYCHLOROQUINE [Concomitant]
     Dosage: 200 mg, qd
  10. METHYLDOPA [Concomitant]
     Dosage: 2.5 mg, qd

REACTIONS (2)
  - Hospitalisation [Unknown]
  - Nausea [Unknown]
